FAERS Safety Report 7565610-1 (Version None)
Quarter: 2011Q2

REPORT INFORMATION
  Report Type: 
  Country: None (occurrence: None)
  Receive Date: 20110623
  Receipt Date: 20110608
  Transmission Date: 20111010
  Serious: Yes (Hospitalization, Other)
  Sender: FDA-Public Use
  Company Number: US-JNJFOC-20110608965

PATIENT
  Age: 49 Year
  Sex: Female

DRUGS (30)
  1. RITUXIMAB [Concomitant]
     Dates: start: 20040714
  2. RITUXIMAB [Concomitant]
     Dates: start: 20040121
  3. VINCRISTINE SULFATE [Concomitant]
     Dates: start: 20060419
  4. DEXAMETHASONE [Concomitant]
     Dates: start: 20060510
  5. DEXAMETHASONE [Concomitant]
     Dates: start: 20050126
  6. DOXORUBICIN HCL [Concomitant]
     Dates: start: 20060510
  7. DOXORUBICIN HCL [Concomitant]
     Dates: start: 20060419
  8. RITUXIMAB [Concomitant]
     Dates: start: 20040128
  9. RITUXIMAB [Concomitant]
     Dates: start: 20050126
  10. METHOTREXATE [Concomitant]
     Dates: start: 20060510
  11. RITUXIMAB [Concomitant]
     Dates: start: 20040728
  12. RITUXIMAB [Concomitant]
     Dates: start: 20040803
  13. RITUXIMAB [Concomitant]
     Dates: start: 20040204
  14. RITUXIMAB [Concomitant]
     Dates: start: 20060419
  15. METHYLPREDNISOLONE [Concomitant]
     Dates: start: 20040121, end: 20040728
  16. REMICADE [Suspect]
     Indication: PRODUCT USED FOR UNKNOWN INDICATION
     Route: 042
     Dates: start: 20040121, end: 20061219
  17. RITUXIMAB [Concomitant]
     Dates: start: 20040721
  18. CHEMOTHERAPY [Concomitant]
     Dates: start: 20060228
  19. CYCLOPHOSPHAMIDE [Concomitant]
     Dates: start: 20060419
  20. DEXAMETHASONE [Concomitant]
     Dates: start: 20060419
  21. METHOTREXATE [Concomitant]
     Dates: start: 20060419
  22. RITUXIMAB [Concomitant]
     Dates: start: 20040211
  23. RITUXIMAB [Concomitant]
     Dates: start: 20060510
  24. VINCRISTINE SULFATE [Concomitant]
     Dates: start: 20060510
  25. CHEMOTHERAPY [Concomitant]
     Dates: start: 20060710
  26. CHEMOTHERAPY [Concomitant]
     Dates: start: 20060712
  27. CHEMOTHERAPY [Concomitant]
     Dates: start: 20060510
  28. DEXAMETHASONE [Concomitant]
     Dates: start: 20040803
  29. CYCLOPHOSPHAMIDE [Concomitant]
     Dates: start: 20060510
  30. CHEMOTHERAPY [Concomitant]
     Dates: start: 20060419

REACTIONS (1)
  - PROGRESSIVE MULTIFOCAL LEUKOENCEPHALOPATHY [None]
